FAERS Safety Report 5252073-4 (Version None)
Quarter: 2007Q1

REPORT INFORMATION
  Report Type: 
  Country: None (occurrence: None)
  Receive Date: 20070227
  Receipt Date: 20070212
  Transmission Date: 20070707
  Serious: Yes (Hospitalization)
  Sender: FDA-Public Use
  Company Number: 8022030

PATIENT
  Age: 75 Year
  Sex: Male

DRUGS (5)
  1. KEPPRA [Suspect]
     Indication: EPILEPSY
     Dosage: 250 MG 2/D
     Dates: start: 20070130
  2. LOCOL [Suspect]
     Indication: HYPERCHOLESTEROLAEMIA
     Dosage: 40 MG 1/D
     Dates: start: 20070129
  3. DELEX PLUS [Concomitant]
  4. BELOC [Concomitant]
  5. VITAMIN B12 + FOLIC ACID [Concomitant]

REACTIONS (6)
  - ERYTHEMA [None]
  - FOLATE DEFICIENCY [None]
  - HYPONATRAEMIA [None]
  - PRURITUS [None]
  - SKIN REACTION [None]
  - VITAMIN B12 DEFICIENCY [None]
